FAERS Safety Report 10596444 (Version 3)
Quarter: 2014Q4

REPORT INFORMATION
  Report Type: Spontaneous
  Country: US (occurrence: US)
  Receive Date: 20141120
  Receipt Date: 20141230
  Transmission Date: 20150529
  Serious: No
  Sender: FDA-Public Use
  Company Number: US-PFIZER INC-2014316757

PATIENT
  Age: 88 Year
  Sex: Male

DRUGS (1)
  1. LYRICA [Suspect]
     Active Substance: PREGABALIN
     Indication: NEURALGIA
     Dosage: 25 MG, UNK
     Dates: start: 20140901, end: 20140901

REACTIONS (4)
  - Drug ineffective [Recovered/Resolved]
  - Hallucination [Recovered/Resolved]
  - Thinking abnormal [Recovered/Resolved]
  - Dizziness [Unknown]
